FAERS Safety Report 9865670 (Version 1)
Quarter: 2014Q1

REPORT INFORMATION
  Report Type: Spontaneous
  Country: US (occurrence: US)
  Receive Date: 20140203
  Receipt Date: 20140203
  Transmission Date: 20141002
  Serious: No
  Sender: FDA-Public Use
  Company Number: US-ALLERGAN-1306905US

PATIENT
  Age: 75 Year
  Sex: Female

DRUGS (3)
  1. RESTASIS [Suspect]
     Indication: PRODUCT USED FOR UNKNOWN INDICATION
     Dosage: 2 GTT, BID
     Route: 047
     Dates: start: 20130304, end: 20130314
  2. ERYTHROMYCIN OINTMENT [Suspect]
     Indication: CORNEAL ABRASION
     Route: 047
  3. HTN MEDICATION [Concomitant]
     Indication: HYPERTENSION
     Dosage: UNK

REACTIONS (1)
  - Eye irritation [Recovered/Resolved]
